FAERS Safety Report 4610990-X (Version None)
Quarter: 2005Q1

REPORT INFORMATION
  Report Type: 
  Country: None (occurrence: None)
  Receive Date: 20050316
  Receipt Date: 20050316
  Transmission Date: 20050727
  Serious: Yes (Hospitalization)
  Sender: FDA-Public Use
  Company Number: None

PATIENT
  Age: 77 Year
  Sex: Male
  Weight: 83.0083 kg

DRUGS (10)
  1. CYTOXAN [Suspect]
     Indication: MESOTHELIOMA
     Dosage: PROTOCOL BB IND 2749
     Dates: start: 20050301
  2. COREG [Concomitant]
  3. CARDIZEM CD [Concomitant]
  4. COUMADIN [Concomitant]
  5. HYDROCHLOROTHIAZIDE [Concomitant]
  6. LANOXIN [Concomitant]
  7. VITAMIN B6 [Concomitant]
  8. B12 [Concomitant]
  9. VITAMIN C [Concomitant]
  10. VITAMIN E [Concomitant]

REACTIONS (3)
  - ANXIETY [None]
  - BLOOD PRESSURE INCREASED [None]
  - MEDICATION ERROR [None]
